FAERS Safety Report 5952721-7 (Version None)
Quarter: 2008Q4

REPORT INFORMATION
  Report Type: 
  Country: None (occurrence: None)
  Receive Date: 20081114
  Receipt Date: 20081107
  Transmission Date: 20090506
  Serious: Yes (Other)
  Sender: FDA-Public Use
  Company Number: NL-ROXANE LABORATORIES, INC.-2008-RO-00205RO

PATIENT
  Age: 24 Year
  Sex: Female

DRUGS (2)
  1. AZATHIOPRINE [Suspect]
     Indication: CROHN'S DISEASE
  2. SUN BLOCK [Concomitant]
     Indication: PHOTOSENSITIVITY ALLERGIC REACTION
     Route: 061

REACTIONS (2)
  - MELANOCYTIC NAEVUS [None]
  - PHOTOSENSITIVITY ALLERGIC REACTION [None]
